FAERS Safety Report 10143047 (Version 1)
Quarter: 2014Q2

REPORT INFORMATION
  Report Type: Report from Study
  Country: US (occurrence: US)
  Receive Date: 20140430
  Receipt Date: 20140430
  Transmission Date: 20141212
  Serious: Yes (Hospitalization, Other)
  Sender: FDA-Public Use
  Company Number: US-PURDUE-USA-2014-0113318

PATIENT
  Sex: Male

DRUGS (2)
  1. OXY CR TAB [Suspect]
     Indication: BACK PAIN
     Dosage: 20 MG, TID
     Route: 048
     Dates: start: 2009
  2. OXY CR TAB [Suspect]
     Indication: ARTHRALGIA

REACTIONS (6)
  - Periodontal disease [Unknown]
  - Dermatitis [Unknown]
  - Staphylococcal infection [Unknown]
  - Cyst [Unknown]
  - Herpes zoster [Unknown]
  - Tooth fracture [Unknown]
